FAERS Safety Report 16927303 (Version 1)
Quarter: 2019Q4

REPORT INFORMATION
  Report Type: Spontaneous
  Country: US (occurrence: US)
  Receive Date: 20191016
  Receipt Date: 20191016
  Transmission Date: 20200122
  Serious: No
  Sender: FDA-Public Use
  Company Number: US-OPTINOSE US, INC-2019OPT000833

PATIENT
  Sex: Male
  Weight: 108.96 kg

DRUGS (5)
  1. XHANCE [Suspect]
     Active Substance: FLUTICASONE PROPIONATE
     Route: 045
     Dates: start: 2019, end: 20190826
  2. DUPIXENT [Suspect]
     Active Substance: DUPILUMAB
     Indication: ASTHMA
     Route: 065
  3. DUPIXENT [Suspect]
     Active Substance: DUPILUMAB
     Indication: PRURITUS
  4. XHANCE [Suspect]
     Active Substance: FLUTICASONE PROPIONATE
     Indication: NASAL POLYPS
     Route: 045
     Dates: start: 2019, end: 20190826
  5. DUPIXENT [Suspect]
     Active Substance: DUPILUMAB
     Indication: DYSPNOEA

REACTIONS (5)
  - Aphonia [Recovering/Resolving]
  - Abnormal sensation in eye [Recovering/Resolving]
  - Influenza like illness [Recovering/Resolving]
  - Cough [Recovering/Resolving]
  - Dysphonia [Recovering/Resolving]

NARRATIVE: CASE EVENT DATE: 2019
